FAERS Safety Report 11413702 (Version 3)
Quarter: 2015Q4

REPORT INFORMATION
  Report Type: Spontaneous
  Country: US (occurrence: US)
  Receive Date: 20150824
  Receipt Date: 20151029
  Transmission Date: 20160304
  Serious: Yes (Hospitalization, Other)
  Sender: FDA-Public Use
  Company Number: US-PFIZER INC-2015277416

PATIENT
  Age: 48 Year
  Sex: Male
  Weight: 122.45 kg

DRUGS (20)
  1. DILANTIN [Suspect]
     Active Substance: PHENYTOIN
     Indication: EPILEPSY
     Dosage: SOMETIMES 800 MG PER DAY (TWICE A DAY)
     Route: 048
  2. CITALOPRAM [Concomitant]
     Active Substance: CITALOPRAM HYDROBROMIDE
     Dosage: 20 MG, 1X/DAY
  3. LIPITOR [Concomitant]
     Active Substance: ATORVASTATIN CALCIUM
     Dosage: 40 MG, 1X/DAY AT BED TIME
  4. IBUPROFEN. [Concomitant]
     Active Substance: IBUPROFEN
     Indication: BACK PAIN
     Dosage: UNK
  5. NIASPAN [Concomitant]
     Active Substance: NIACIN
     Dosage: 5 MG ; 1 EVERY 6 HR
  6. KEPPRA [Concomitant]
     Active Substance: LEVETIRACETAM
     Indication: SEIZURE
     Dosage: 1000 MG, UNK
  7. IBUPROFEN. [Concomitant]
     Active Substance: IBUPROFEN
     Dosage: 800 MG, UNK (1 EVERY 6-8 HOUR)
  8. KEPPRA [Concomitant]
     Active Substance: LEVETIRACETAM
     Dosage: 2000 MG, DAILY (1000 MG; 2 PER DAY)
     Dates: start: 201504
  9. METOPROLOL SUCCINATE. [Concomitant]
     Active Substance: METOPROLOL SUCCINATE
     Dosage: 100MG AT NIGHT
  10. TRAMADOL. [Concomitant]
     Active Substance: TRAMADOL
     Dosage: 50 MG, 4X/DAY (1 EVERY 6 HOUR)
  11. CARBIDOPA LEVODOPA [Concomitant]
     Active Substance: CARBIDOPA\LEVODOPA
     Dosage: 1 DF, DAILY (10-100 MG; 1 PER DAY)
  12. VITAMIN D [Concomitant]
     Active Substance: CHOLECALCIFEROL
     Dosage: 50000 IU, UNK
  13. DILANTIN [Suspect]
     Active Substance: PHENYTOIN
     Dosage: 4 IN THE MORNING AND 3 AT NIGHT OR SOMETIMES 3 IN THE MORNING OR 4 AT NIGHT) , 2X/DAY
     Route: 048
  14. FOLIC ACID. [Concomitant]
     Active Substance: FOLIC ACID
     Dosage: 1 MG, DAILY
  15. DILANTIN [Suspect]
     Active Substance: PHENYTOIN
     Dosage: 100 MG;7 PER DAY, 3 IN MORNING 4 AT NIGHT
     Route: 048
     Dates: start: 1987
  16. ENALAPRIL [Concomitant]
     Active Substance: ENALAPRIL
     Dosage: 20 MG, 2X/DAY (1 IN MORNING,1 AT NIGHT)
  17. ASPIRIN. [Concomitant]
     Active Substance: ASPIRIN
     Dosage: 81 MG, DAILY
  18. ATORVASTATIN [Concomitant]
     Active Substance: ATORVASTATIN
     Dosage: 40 MG, 1X/DAY (1 BED TIME)
  19. NORVASC [Concomitant]
     Active Substance: AMLODIPINE BESYLATE
     Dosage: 10 MG, DAILY
  20. HYDROCODONE [Concomitant]
     Active Substance: HYDROCODONE
     Dosage: 5-325; 1 EVERY 6-8 HOUR

REACTIONS (3)
  - Parkinson^s disease [Not Recovered/Not Resolved]
  - Spinal fracture [Not Recovered/Not Resolved]
  - Drug ineffective [Not Recovered/Not Resolved]

NARRATIVE: CASE EVENT DATE: 201504
